FAERS Safety Report 8784510 (Version 3)
Quarter: 2013Q3

REPORT INFORMATION
  Report Type: Spontaneous
  Country: BR (occurrence: BR)
  Receive Date: 20120913
  Receipt Date: 20130731
  Transmission Date: 20140515
  Serious: Yes (Other)
  Sender: FDA-Public Use
  Company Number: BR-AMGEN-BRASP2012015458

PATIENT
  Age: 50 Year
  Sex: Female
  Weight: 75 kg

DRUGS (15)
  1. ENBREL [Suspect]
     Dosage: UNK, 2 TIMES/WK
     Route: 065
     Dates: start: 2010
  2. ENBREL [Suspect]
     Dosage: 50 MG, WEEKLY
     Route: 058
     Dates: start: 201112
  3. ENBREL [Suspect]
     Dosage: 50 MG, ONCE WEEKLY
     Route: 058
     Dates: start: 2012
  4. METHOTREXATE [Concomitant]
     Dosage: 2.5 MG, UNK
  5. DIUBLOK [Concomitant]
     Indication: HYPERTENSION
     Dosage: UNK, QD
  6. DIUBLOK [Concomitant]
     Dosage: UNK
  7. ENALAPRIL [Concomitant]
     Indication: HYPERTENSION
     Dosage: UNK, QD
  8. ENALAPRIL [Concomitant]
     Dosage: UNK
  9. METFORMIN HYDROCHLORIDE [Concomitant]
     Indication: DIABETES MELLITUS
     Dosage: 850 MG, BID
  10. PREDSIM [Concomitant]
     Dosage: 20 MG, UNK
  11. MELOXICAM [Concomitant]
     Dosage: 15 MG, UNK
  12. ENDOFOLIN [Concomitant]
     Dosage: UNK
  13. OMEPRAZOLE [Concomitant]
     Dosage: UNK
  14. MAXSULID [Concomitant]
     Dosage: UNK
  15. ENBREL [Suspect]
     Indication: RHEUMATOID ARTHRITIS
     Dosage: UNK
     Route: 058
     Dates: start: 2009

REACTIONS (10)
  - Arthropathy [Unknown]
  - Rotator cuff syndrome [Unknown]
  - Musculoskeletal pain [Not Recovered/Not Resolved]
  - Arthritis [Unknown]
  - Blood glucose abnormal [Unknown]
  - Haematoma [Unknown]
  - Pyrexia [Unknown]
  - Haemorrhoids [Unknown]
  - Wrong technique in drug usage process [Unknown]
  - Injection site pain [Unknown]
